FAERS Safety Report 8509685-1 (Version None)
Quarter: 2012Q3

REPORT INFORMATION
  Report Type: 
  Country: None (occurrence: None)
  Receive Date: 20120713
  Receipt Date: 20120625
  Transmission Date: 20120928
  Serious: No
  Sender: FDA-Public Use
  Company Number: US-ASTRAZENECA-2012SE20543

PATIENT
  Age: 79 Year
  Sex: Female

DRUGS (2)
  1. CRESTOR [Suspect]
     Route: 048
  2. LISINOPRIL [Suspect]
     Indication: PROPHYLAXIS
     Route: 065

REACTIONS (4)
  - MEMORY IMPAIRMENT [None]
  - HYPOACUSIS [None]
  - DYSPNOEA [None]
  - DIABETES MELLITUS [None]
